FAERS Safety Report 12104495 (Version 2)
Quarter: 2016Q1

REPORT INFORMATION
  Report Type: Spontaneous
  Country: DE (occurrence: DE)
  Receive Date: 20160223
  Receipt Date: 20160311
  Transmission Date: 20160526
  Serious: Yes (Death)
  Sender: FDA-Public Use
  Company Number: DE-SA-2016SA035502

PATIENT
  Age: 65 Year
  Sex: Male
  Weight: 59 kg

DRUGS (7)
  1. PANTOPRAZOL [Concomitant]
     Active Substance: PANTOPRAZOLE SODIUM
  2. MYOZYME [Suspect]
     Active Substance: ALGLUCOSIDASE ALFA
     Indication: GLYCOGEN STORAGE DISEASE TYPE II
     Route: 041
  3. RAMIPRIL. [Concomitant]
     Active Substance: RAMIPRIL
     Indication: PULMONARY HYPERTENSION
  4. XIPAMIDE [Concomitant]
     Active Substance: XIPAMIDE
  5. TAMSULOSIN [Concomitant]
     Active Substance: TAMSULOSIN
     Indication: HYPERTENSION
  6. ASPIRIN. [Concomitant]
     Active Substance: ASPIRIN
  7. METOPROLOL. [Concomitant]
     Active Substance: METOPROLOL
     Indication: CARDIAC FAILURE

REACTIONS (2)
  - Acute myocardial infarction [Fatal]
  - Brain injury [Fatal]

NARRATIVE: CASE EVENT DATE: 20160119
